FAERS Safety Report 17545894 (Version 1)
Quarter: 2020Q1

REPORT INFORMATION
  Report Type: Spontaneous
  Country: GB (occurrence: GB)
  Receive Date: 20200316
  Receipt Date: 20200316
  Transmission Date: 20200409
  Serious: Yes (Hospitalization)
  Sender: FDA-Public Use
  Company Number: GB-MYLANLABS-2020M1026648

PATIENT
  Age: 45 Year
  Sex: Female
  Weight: 58 kg

DRUGS (4)
  1. ONDANSETRON [Concomitant]
     Active Substance: ONDANSETRON
     Dosage: UNK
     Dates: start: 201905
  2. SERTRALINE [Suspect]
     Active Substance: SERTRALINE HYDROCHLORIDE
     Dosage: 200 MILLIGRAM
     Route: 048
     Dates: start: 20190111
  3. SERTRALINE [Suspect]
     Active Substance: SERTRALINE HYDROCHLORIDE
     Indication: ANXIETY
     Dosage: 100 MILLIGRAM
     Route: 048
     Dates: end: 20190110
  4. FLUCONAZOLE. [Concomitant]
     Active Substance: FLUCONAZOLE
     Indication: CANDIDA INFECTION
     Dosage: UNK

REACTIONS (20)
  - Dysarthria [Unknown]
  - Gait disturbance [Unknown]
  - Gingival bleeding [Unknown]
  - Tremor [Unknown]
  - Serotonin syndrome [Unknown]
  - Drug dose titration not performed [Unknown]
  - Alopecia [Unknown]
  - Vomiting [Not Recovered/Not Resolved]
  - Nausea [Not Recovered/Not Resolved]
  - Palpitations [Unknown]
  - Hyperthermia [Unknown]
  - Loss of consciousness [Unknown]
  - Dehydration [Unknown]
  - Myalgia [Unknown]
  - Personality change [Unknown]
  - Trichorrhexis [Unknown]
  - Blood glucose decreased [Unknown]
  - Blood pressure increased [Unknown]
  - Nystagmus [Unknown]
  - Abnormal loss of weight [Unknown]

NARRATIVE: CASE EVENT DATE: 201901
